FAERS Safety Report 7828277-0 (Version None)
Quarter: 2011Q4

REPORT INFORMATION
  Report Type: 
  Country: None (occurrence: None)
  Receive Date: 20111020
  Receipt Date: 20111010
  Transmission Date: 20120403
  Serious: No
  Sender: FDA-Public Use
  Company Number: US-PFIZER INC-2011241770

PATIENT
  Sex: Male
  Weight: 86.168 kg

DRUGS (3)
  1. VIAGRA [Suspect]
     Indication: ERECTILE DYSFUNCTION
     Dosage: 100 MG, AS NEEDED
     Route: 048
     Dates: start: 20020101
  2. DIOVAN [Concomitant]
     Dosage: UNK, 1X/DAY EVERY MORNING
  3. VYTORIN [Concomitant]
     Indication: BLOOD CHOLESTEROL INCREASED
     Dosage: UNK, 1X/DAY (AT NIGHT)

REACTIONS (1)
  - DRUG INEFFECTIVE [None]
